FAERS Safety Report 5812871-2 (Version None)
Quarter: 2008Q3

REPORT INFORMATION
  Report Type: 
  Country: None (occurrence: None)
  Receive Date: 20080717
  Receipt Date: 20071231
  Transmission Date: 20090109
  Serious: No
  Sender: FDA-Public Use
  Company Number: A0418587A

PATIENT
  Age: 66 Year
  Sex: Female

DRUGS (1)
  1. NICORETTE [Suspect]
     Dates: start: 20030727, end: 20030728

REACTIONS (3)
  - HICCUPS [None]
  - NAUSEA [None]
  - PAIN IN JAW [None]
